FAERS Safety Report 12741909 (Version 1)
Quarter: 2016Q3

REPORT INFORMATION
  Report Type: Spontaneous
  Country: US (occurrence: US)
  Receive Date: 20160913
  Receipt Date: 20160913
  Transmission Date: 20161109
  Serious: No
  Sender: FDA-Public Use
  Company Number: None

PATIENT
  Sex: Female
  Weight: 85.5 kg

DRUGS (10)
  1. POTTASSIUM [Concomitant]
  2. UNITHROID [Concomitant]
     Active Substance: LEVOTHYROXINE SODIUM
  3. LIOTHYRONINE [Concomitant]
     Active Substance: LIOTHYRONINE
  4. BYSTOLIC [Concomitant]
     Active Substance: NEBIVOLOL HYDROCHLORIDE
  5. EDARBI [Suspect]
     Active Substance: AZILSARTAN KAMEDOXOMIL
     Indication: HYPERTENSION
     Route: 048
     Dates: start: 20120420, end: 20160913
  6. VITAMIN D [Concomitant]
     Active Substance: CHOLECALCIFEROL
  7. BENADRYL [Concomitant]
     Active Substance: DIPHENHYDRAMINE HYDROCHLORIDE
  8. CHLORTHALADOE [Concomitant]
  9. ALLOP-URINOL [Concomitant]
  10. ALLEGRA [Concomitant]
     Active Substance: FEXOFENADINE HYDROCHLORIDE

REACTIONS (2)
  - Rash [None]
  - Frustration tolerance decreased [None]
